FAERS Safety Report 4347799-0 (Version None)
Quarter: 2004Q2

REPORT INFORMATION
  Report Type: 
  Country: None (occurrence: None)
  Receive Date: 20040422
  Receipt Date: 20040413
  Transmission Date: 20050107
  Serious: Yes (Death, Hospitalization)
  Sender: FDA-Public Use
  Company Number: US-SHR-04-021611

PATIENT
  Age: 65 Year
  Sex: Female
  Weight: 59.4 kg

DRUGS (8)
  1. CAMPATH [Suspect]
     Indication: CHRONIC LYMPHOCYTIC LEUKAEMIA
     Dosage: SEE IMAGE
     Route: 065
     Dates: start: 20040119, end: 20040121
  2. CAMPATH [Suspect]
     Indication: CHRONIC LYMPHOCYTIC LEUKAEMIA
     Dosage: SEE IMAGE
     Route: 065
     Dates: start: 20040121, end: 20040130
  3. CAMPATH [Suspect]
     Indication: CHRONIC LYMPHOCYTIC LEUKAEMIA
     Dosage: SEE IMAGE
     Route: 065
     Dates: start: 20040201, end: 20040211
  4. FAMVIR [Concomitant]
  5. BACTRIM [Concomitant]
  6. DIPHENHYDRAMINE (BENADRYL) (DIPHENHYDRAMINE) [Concomitant]
  7. MEPERIDINE HYDROCHLORIDE (DEMEROL) [Concomitant]
  8. TYLENOL (CAPLET) [Concomitant]

REACTIONS (9)
  - ASTHENIA [None]
  - CHRONIC LYMPHOCYTIC LEUKAEMIA [None]
  - DYSPNOEA [None]
  - FAILURE TO THRIVE [None]
  - HYPOAESTHESIA ORAL [None]
  - INAPPROPRIATE ANTIDIURETIC HORMONE SECRETION [None]
  - INFUSION RELATED REACTION [None]
  - MALIGNANT NEOPLASM PROGRESSION [None]
  - PYREXIA [None]
